FAERS Safety Report 5417788-3 (Version None)
Quarter: 2007Q3

REPORT INFORMATION
  Report Type: 
  Country: None (occurrence: None)
  Receive Date: 20070815
  Receipt Date: 20070815
  Transmission Date: 20080115
  Serious: Yes (Hospitalization)
  Sender: FDA-Public Use
  Company Number: None

PATIENT
  Sex: Male
  Weight: 61.2356 kg

DRUGS (2)
  1. OXYPADS [Suspect]
     Indication: ACNE
     Dosage: TOPICAL  (THERAPY DATES: PRIOR TO ADMISSION)
     Route: 061
  2. VITAMIN E CREAM [Concomitant]

REACTIONS (2)
  - ERYTHEMA [None]
  - SWELLING FACE [None]
